FAERS Safety Report 8918442 (Version 3)
Quarter: 2014Q1

REPORT INFORMATION
  Report Type: Spontaneous
  Country: US (occurrence: US)
  Receive Date: 20121120
  Receipt Date: 20140228
  Transmission Date: 20141002
  Serious: Yes (Hospitalization)
  Sender: FDA-Public Use
  Company Number: US-ASTRAZENECA-2012SE17712

PATIENT
  Age: 43 Year
  Sex: Male
  Weight: 68.5 kg

DRUGS (4)
  1. NEXIUM [Suspect]
     Indication: BARRETT^S OESOPHAGUS
     Route: 048
     Dates: start: 2011, end: 2012
  2. NEXIUM [Suspect]
     Indication: GASTROOESOPHAGEAL REFLUX DISEASE
     Route: 048
     Dates: start: 2011, end: 2012
  3. PRILOSEC [Suspect]
     Route: 048
  4. XANAX [Concomitant]
     Indication: ANXIETY
     Dosage: 0.5 DAILY

REACTIONS (14)
  - Gastric disorder [Unknown]
  - Dyspepsia [Not Recovered/Not Resolved]
  - Adverse event [Not Recovered/Not Resolved]
  - Memory impairment [Not Recovered/Not Resolved]
  - Chest pain [Not Recovered/Not Resolved]
  - Insomnia [Not Recovered/Not Resolved]
  - Influenza [Unknown]
  - Dysphagia [Unknown]
  - Decreased appetite [Unknown]
  - Hyperglycaemia [Unknown]
  - Dehydration [Unknown]
  - Dry mouth [Unknown]
  - Off label use [Unknown]
  - Drug dose omission [Unknown]
